FAERS Safety Report 6690787-X (Version None)
Quarter: 2010Q2

REPORT INFORMATION
  Report Type: 
  Country: None (occurrence: None)
  Receive Date: 20100421
  Receipt Date: 20100421
  Transmission Date: 20101027
  Serious: Yes (Hospitalization)
  Sender: FDA-Public Use
  Company Number: US-ABBOTT-10P-163-0636748-00

PATIENT
  Sex: Female

DRUGS (5)
  1. LUPRON DEPOT [Suspect]
     Indication: UTERINE LEIOMYOMA
     Route: 050
     Dates: start: 20090501, end: 20090501
  2. CALCIUM CITRATE [Suspect]
     Indication: PAIN IN EXTREMITY
     Dates: start: 20090501, end: 20090501
  3. WOMENS ONE A DAY [Concomitant]
     Indication: VITAMIN SUPPLEMENTATION
  4. PRILOSEC [Concomitant]
     Indication: GASTROOESOPHAGEAL REFLUX DISEASE
     Dates: start: 20070101
  5. IRON SUPPLEMENT [Concomitant]
     Indication: ANAEMIA

REACTIONS (10)
  - ABDOMINAL PAIN [None]
  - CHEST DISCOMFORT [None]
  - FATIGUE [None]
  - GASTROOESOPHAGEAL REFLUX DISEASE [None]
  - HOT FLUSH [None]
  - NAUSEA [None]
  - PAIN IN EXTREMITY [None]
  - RED BLOOD CELL COUNT DECREASED [None]
  - UTERINE LEIOMYOMA [None]
  - WOUND DEHISCENCE [None]
